FAERS Safety Report 4917144-8 (Version None)
Quarter: 2006Q1

REPORT INFORMATION
  Report Type: 
  Country: None (occurrence: None)
  Receive Date: 20060221
  Receipt Date: 20060210
  Transmission Date: 20060701
  Serious: Yes (Other)
  Sender: FDA-Public Use
  Company Number: PHBS2006IT02303

PATIENT
  Age: 8 Year
  Sex: Female

DRUGS (1)
  1. CYCLOSPORINE [Suspect]
     Indication: BONE MARROW TRANSPLANT
     Route: 065

REACTIONS (10)
  - CEREBELLAR ATROPHY [None]
  - CEREBRAL DISORDER [None]
  - CEREBROSCLEROSIS [None]
  - CLONUS [None]
  - CONVULSION [None]
  - ELECTROENCEPHALOGRAM ABNORMAL [None]
  - EPILEPSY [None]
  - GRAFT VERSUS HOST DISEASE [None]
  - MYOCLONUS [None]
  - STEM CELL TRANSPLANT [None]
